FAERS Safety Report 8228689-X (Version None)
Quarter: 2012Q1

REPORT INFORMATION
  Report Type: 
  Country: None (occurrence: None)
  Receive Date: 20120322
  Receipt Date: 20120319
  Transmission Date: 20120608
  Serious: No
  Sender: FDA-Public Use
  Company Number: US-PFIZER INC-2012069858

PATIENT
  Sex: Female
  Weight: 68.027 kg

DRUGS (3)
  1. CHANTIX [Suspect]
     Indication: SMOKING CESSATION THERAPY
     Dosage: 0.5 MG, DAILY
     Dates: start: 20120312, end: 20120301
  2. CHANTIX [Suspect]
     Dosage: UNK
     Dates: start: 20120301
  3. CHANTIX [Suspect]
     Dosage: 0.5 MG, 2X/DAY
     Dates: start: 20120301, end: 20120301

REACTIONS (3)
  - FEELING ABNORMAL [None]
  - DIZZINESS [None]
  - DRUG INEFFECTIVE [None]
